FAERS Safety Report 5626718-0 (Version None)
Quarter: 2008Q1

REPORT INFORMATION
  Report Type: 
  Country: None (occurrence: None)
  Receive Date: 20080214
  Receipt Date: 20080204
  Transmission Date: 20080703
  Serious: Yes (Death)
  Sender: FDA-Public Use
  Company Number: IT-PFIZER INC-2008011712

PATIENT
  Sex: Female

DRUGS (4)
  1. TORVAST [Suspect]
     Indication: HYPERTENSIVE CARDIOMYOPATHY
     Route: 048
     Dates: start: 20080115, end: 20080128
  2. LOBIVON [Concomitant]
  3. TAVANIC [Concomitant]
     Dosage: DAILY DOSE:500MG
  4. COTAREG [Concomitant]
     Route: 048
     Dates: start: 20080114, end: 20080128

REACTIONS (5)
  - HYPOVOLAEMIC SHOCK [None]
  - METABOLIC ACIDOSIS [None]
  - MYALGIA [None]
  - RENAL FAILURE ACUTE [None]
  - RESPIRATORY FAILURE [None]
